FAERS Safety Report 6303921-8 (Version None)
Quarter: 2009Q3

REPORT INFORMATION
  Report Type: 
  Country: None (occurrence: None)
  Receive Date: 20090810
  Receipt Date: 20090810
  Transmission Date: 20100115
  Serious: Yes (Other)
  Sender: FDA-Public Use
  Company Number: None

PATIENT
  Age: 65 Year
  Sex: Female
  Weight: 78.0187 kg

DRUGS (1)
  1. ADVAIR HFA [Suspect]
     Indication: ASTHMA
     Dosage: 1-SPRAY MOUTH, 1 X DAY
     Route: 048
     Dates: start: 20090515, end: 20090712

REACTIONS (4)
  - ASTHMA [None]
  - COUGH [None]
  - DYSPHONIA [None]
  - DYSPNOEA [None]
